FAERS Safety Report 9100931 (Version 2)
Quarter: 2013Q1

REPORT INFORMATION
  Report Type: Spontaneous
  Country: CA (occurrence: CA)
  Receive Date: 20130215
  Receipt Date: 20130305
  Transmission Date: 20140127
  Serious: Yes (Hospitalization)
  Sender: FDA-Public Use
  Company Number: PHHY2013CA013586

PATIENT
  Sex: Male

DRUGS (7)
  1. GLEEVEC [Suspect]
     Indication: CHRONIC MYELOID LEUKAEMIA
     Dosage: 400 MG, DAILY
     Route: 048
     Dates: start: 20120123
  2. GLEEVEC [Suspect]
     Dosage: 200 MG, DAILY
     Route: 048
  3. GLEEVEC [Suspect]
     Dosage: 400 MG, DAILY
     Route: 048
     Dates: start: 20130125, end: 20120306
  4. GLEEVEC [Suspect]
     Dosage: 400 MG, DAILY
     Route: 048
     Dates: start: 20120313
  5. GLEEVEC [Suspect]
     Dosage: 200 MG, BID
     Route: 048
     Dates: start: 20120411
  6. ALLOPURINOL [Concomitant]
     Dosage: 300 MG, BID (FOR 1 MONTH)
     Route: 048
     Dates: start: 20120123
  7. STEMETIL ^SPECIA^ [Concomitant]
     Dosage: 10 MG, UNK
     Route: 048

REACTIONS (3)
  - Antibody test abnormal [Recovered/Resolved]
  - Drug intolerance [Recovered/Resolved]
  - Drug ineffective [Recovered/Resolved]
